FAERS Safety Report 24951991 (Version 1)
Quarter: 2025Q1

REPORT INFORMATION
  Report Type: Spontaneous
  Country: BR (occurrence: BR)
  Receive Date: 20250210
  Receipt Date: 20250210
  Transmission Date: 20250408
  Serious: Yes (Death, Hospitalization, Other)
  Sender: AMNEAL
  Company Number: BR-AMNEAL PHARMACEUTICALS-2025-AMRX-00455

PATIENT
  Age: 15 Year
  Sex: Female
  Weight: 54 kg

DRUGS (2)
  1. DIVALPROEX SODIUM ER [Suspect]
     Active Substance: DIVALPROEX SODIUM
     Indication: Product used for unknown indication
     Route: 048
  2. QUETIAPINE FUMARATE [Suspect]
     Active Substance: QUETIAPINE FUMARATE
     Indication: Product used for unknown indication
     Route: 048

REACTIONS (9)
  - Cardio-respiratory arrest [Fatal]
  - Completed suicide [Fatal]
  - Multiple organ dysfunction syndrome [None]
  - Hypovolaemic shock [None]
  - Toxicity to various agents [None]
  - Arrhythmia [Fatal]
  - Metabolic acidosis [Unknown]
  - Electrolyte imbalance [Unknown]
  - Coagulopathy [Unknown]
